FAERS Safety Report 17516202 (Version 4)
Quarter: 2020Q1

REPORT INFORMATION
  Report Type: Report from Study
  Country: ES (occurrence: ES)
  Receive Date: 20200309
  Receipt Date: 20200317
  Transmission Date: 20200409
  Serious: Yes (Hospitalization)
  Sender: FDA-Public Use
  Company Number: ES-PFIZER INC-2020101596

PATIENT
  Age: 74 Year
  Sex: Male
  Weight: 82 kg

DRUGS (10)
  1. CALCIUM FOLINATE [Suspect]
     Active Substance: LEUCOVORIN CALCIUM
     Indication: GASTROOESOPHAGEAL CANCER
     Dosage: 200 MG, CYCLIC (ONCE EVERY 2 WEEKS)
     Route: 042
     Dates: start: 20190829, end: 20200204
  2. SIMVASTATIN. [Concomitant]
     Active Substance: SIMVASTATIN
     Indication: DYSLIPIDAEMIA
     Dosage: 20 MG, UNK
  3. SIMVASTATIN. [Concomitant]
     Active Substance: SIMVASTATIN
     Indication: HYPERTENSION
  4. AVELUMAB [Suspect]
     Active Substance: AVELUMAB
     Indication: GASTROOESOPHAGEAL CANCER
     Dosage: 10 MG/KG, CYCLIC (ONCE EVERY 2 WEEKS)
     Route: 042
     Dates: start: 20190829, end: 20200218
  5. DOCETAXEL. [Suspect]
     Active Substance: DOCETAXEL
     Indication: GASTROOESOPHAGEAL CANCER
     Dosage: 50 MG, CYCLIC (ONCE EVERY 2 WEEKS)
     Route: 042
     Dates: start: 20190829, end: 20200204
  6. ADIRO [Concomitant]
     Active Substance: ASPIRIN
     Indication: ISCHAEMIC CARDIOMYOPATHY
     Dosage: 1 DF, UNK
  7. 5-FU [Suspect]
     Active Substance: FLUOROURACIL
     Indication: GASTROOESOPHAGEAL CANCER
     Dosage: 2500 MG, CYCLIC (ONCE EVERY 2 WEEKS)
     Route: 042
     Dates: start: 20190829, end: 20200204
  8. INSULIN HUMULIN-N [Concomitant]
     Indication: DIABETES MELLITUS
     Dosage: 26 OTHER
  9. OXALIPLATIN. [Suspect]
     Active Substance: OXALIPLATIN
     Indication: GASTROOESOPHAGEAL CANCER
     Dosage: 85 MG, CYCLIC (ONCE EVERY 2 WEEKS)
     Route: 042
     Dates: start: 20190829, end: 20200204
  10. METFORMIN [Concomitant]
     Active Substance: METFORMIN HYDROCHLORIDE
     Indication: DIABETES MELLITUS
     Dosage: 850 MG, UNK

REACTIONS (1)
  - Splenic abscess [Recovered/Resolved]

NARRATIVE: CASE EVENT DATE: 20200225
